FAERS Safety Report 22249238 (Version 2)
Quarter: 2023Q2

REPORT INFORMATION
  Report Type: Spontaneous
  Country: RO (occurrence: None)
  Receive Date: 20230425
  Receipt Date: 20230426
  Transmission Date: 20230721
  Serious: Yes (Other)
  Sender: FDA-Public Use
  Company Number: RO-ROCHE-3332772

PATIENT
  Age: 78 Year
  Sex: Female

DRUGS (3)
  1. TECENTRIQ [Suspect]
     Active Substance: ATEZOLIZUMAB
     Indication: Hepatocellular carcinoma
     Route: 041
  2. BEVACIZUMAB [Suspect]
     Active Substance: BEVACIZUMAB
     Indication: Hepatocellular carcinoma
     Route: 042
  3. SORAFENIB [Concomitant]
     Active Substance: SORAFENIB
     Route: 048

REACTIONS (4)
  - Blood urea increased [Unknown]
  - Glomerulonephritis [Unknown]
  - Blood creatinine increased [Unknown]
  - Proteinuria [Unknown]
